FAERS Safety Report 8881912 (Version 2)
Quarter: 2012Q4

REPORT INFORMATION
  Report Type: 
  Country: US (occurrence: US)
  Receive Date: 20121102
  Receipt Date: 20121114
  Transmission Date: 20130627
  Serious: Yes (Other)
  Sender: FDA-Public Use
  Company Number: CHPA2012US022607

PATIENT
  Age: 69 Year
  Sex: Female

DRUGS (1)
  1. EXCEDRIN MIGRAINE [Suspect]
     Indication: TUMOUR PAIN
     Dosage: 4-5 DF, QD
     Route: 048
     Dates: start: 1998

REACTIONS (4)
  - Optic nerve neoplasm [Recovered/Resolved]
  - Therapeutic response unexpected [Unknown]
  - Off label use [Unknown]
  - Overdose [Unknown]
